FAERS Safety Report 20320943 (Version 1)
Quarter: 2022Q1

REPORT INFORMATION
  Report Type: Spontaneous
  Country: BR (occurrence: BR)
  Receive Date: 20220111
  Receipt Date: 20220111
  Transmission Date: 20220424
  Serious: Yes (Other)
  Sender: FDA-Public Use
  Company Number: BR-NOVARTISPH-NVSC2021BR286080

PATIENT
  Age: 68 Year
  Sex: Female
  Weight: 116 kg

DRUGS (10)
  1. COSENTYX [Suspect]
     Active Substance: SECUKINUMAB
     Indication: Psoriasis
     Dosage: 300 MG (2 PENS), QW
     Route: 058
     Dates: start: 20210506
  2. COSENTYX [Suspect]
     Active Substance: SECUKINUMAB
     Dosage: 300 MG (2 PENS), QMO
     Route: 058
  3. ATORVASTATIN [Concomitant]
     Active Substance: ATORVASTATIN
     Indication: Blood cholesterol
     Dosage: 2 DOSAGE FORM, QD (BY NIGHT)
     Route: 065
     Dates: start: 202112
  4. ENALAPRIL [Concomitant]
     Active Substance: ENALAPRIL
     Indication: Hypertension
     Dosage: 1 DOSAGE FORM, BID (BY MORNING AND BY NIGHT SINCE MORE THAN 20 YEARS AGO)
     Route: 048
  5. GLIFAGE [Concomitant]
     Active Substance: METFORMIN HYDROCHLORIDE
     Indication: Diabetes mellitus
     Dosage: 2 DOSAGE FORM, BID (BY MORNING AND BY NIGHT SINCE MORE THAN 20 YEARS AGO)
     Route: 048
  6. INSULIN NOS [Concomitant]
     Active Substance: INSULIN NOS
     Indication: Diabetes mellitus
     Dosage: ACCORDING TO THE GLUCOSE LEVEL, SINCE MORE THAN 20 YEARS AGO
     Route: 058
  7. NPH INSULIN [Concomitant]
     Active Substance: INSULIN BEEF
     Indication: Diabetes mellitus
     Dosage: 60 UNIT BY THE MORNING AND 45 UNIT BY NIGHT, BID (BY MORNING AND BY NIGHT SINCE MORE THAN 20 YEARS A
     Route: 058
  8. CARVEDILOL [Concomitant]
     Active Substance: CARVEDILOL
     Indication: Hypertension
     Dosage: 1 DOSAGE FORM, BID (BY MORNING AND BY NIGHT SINCE MORE THAN 20 YEARS AGO)
     Route: 048
  9. HYDROCHLOROTHIAZIDE [Concomitant]
     Active Substance: HYDROCHLOROTHIAZIDE
     Indication: Swelling
     Dosage: UNK UNK, PRN (SINCE BEFORE COSENTYX)
     Route: 048
  10. LORATADINE [Concomitant]
     Active Substance: LORATADINE
     Indication: Pruritus
     Dosage: UNK, BID TABLETS BY THE MORNING AND 2 BY NIGHT (WHEN NECESSARY)
     Route: 048

REACTIONS (4)
  - Gait disturbance [Recovered/Resolved]
  - Arthralgia [Not Recovered/Not Resolved]
  - Anaemia [Not Recovered/Not Resolved]
  - Inappropriate schedule of product administration [Recovered/Resolved]

NARRATIVE: CASE EVENT DATE: 20210506
